FAERS Safety Report 6849662-X (Version None)
Quarter: 2010Q3

REPORT INFORMATION
  Report Type: 
  Country: None (occurrence: None)
  Receive Date: 20100716
  Receipt Date: 20071115
  Transmission Date: 20110219
  Serious: Yes (Other)
  Sender: FDA-Public Use
  Company Number: US-PFIZER INC-2007084051

PATIENT
  Sex: Male
  Weight: 82.727 kg

DRUGS (6)
  1. CHANTIX [Suspect]
     Indication: SMOKING CESSATION THERAPY
     Dates: start: 20060701
  2. COMBIVIR [Concomitant]
     Indication: HIV INFECTION
  3. CRIXIVAN [Concomitant]
     Indication: HIV INFECTION
  4. ALL OTHER THERAPEUTIC PRODUCTS [Concomitant]
  5. VALIUM [Concomitant]
     Dosage: ONE HALF TABLET TWICE A DAY
  6. SINEQUAN [Concomitant]

REACTIONS (2)
  - ALANINE AMINOTRANSFERASE INCREASED [None]
  - ASPARTATE AMINOTRANSFERASE INCREASED [None]
